FAERS Safety Report 12461082 (Version 1)
Quarter: 2016Q2

REPORT INFORMATION
  Report Type: Spontaneous
  Country: CA (occurrence: CA)
  Receive Date: 20160613
  Receipt Date: 20160613
  Transmission Date: 20160815
  Serious: Yes (Hospitalization)
  Sender: FDA-Public Use
  Company Number: CA-IPCA LABORATORIES LIMITED-IPC201606-000483

PATIENT
  Age: 69 Year
  Sex: Female

DRUGS (15)
  1. SPIRONOLACTONE. [Interacting]
     Active Substance: SPIRONOLACTONE
  2. AMITRIPTYLINE [Concomitant]
     Active Substance: AMITRIPTYLINE
  3. QUETIAPINE. [Concomitant]
     Active Substance: QUETIAPINE
  4. ZOPICLONE [Concomitant]
     Active Substance: ZOPICLONE
  5. NITROGLYCERIN. [Concomitant]
     Active Substance: NITROGLYCERIN
  6. OLANZAPINE. [Concomitant]
     Active Substance: OLANZAPINE
  7. CELECOXIB. [Interacting]
     Active Substance: CELECOXIB
  8. RIVAROXABAN [Concomitant]
     Active Substance: RIVAROXABAN
  9. DILTIAZEM [Concomitant]
     Active Substance: DILTIAZEM
  10. LANSOPRAZOLE. [Concomitant]
     Active Substance: LANSOPRAZOLE
  11. ESCITALOPRAM [Concomitant]
     Active Substance: ESCITALOPRAM OXALATE
  12. NITROFURANTOIN. [Concomitant]
     Active Substance: NITROFURANTOIN
  13. FUROSEMIDE. [Suspect]
     Active Substance: FUROSEMIDE
  14. DIGOXIN. [Interacting]
     Active Substance: DIGOXIN
  15. LEVOTHYROXINE SODIUM. [Interacting]
     Active Substance: LEVOTHYROXINE SODIUM

REACTIONS (5)
  - Depressed level of consciousness [Recovered/Resolved]
  - Vomiting [Recovered/Resolved]
  - Drug interaction [Unknown]
  - Toxicity to various agents [Recovered/Resolved]
  - Confusional state [Recovered/Resolved]
